FAERS Safety Report 9908216 (Version 1)
Quarter: 2014Q1

REPORT INFORMATION
  Report Type: Spontaneous
  Country: US (occurrence: US)
  Receive Date: 20140219
  Receipt Date: 20140219
  Transmission Date: 20141002
  Serious: No
  Sender: FDA-Public Use
  Company Number: US-009507513-1402USA006854

PATIENT
  Sex: Female
  Weight: 58.96 kg

DRUGS (3)
  1. DESOGEN [Suspect]
     Indication: DYSMENORRHOEA
     Dosage: 0.15/0.03, DAILY
     Route: 048
     Dates: start: 2002
  2. DESOGEN [Suspect]
     Indication: ACNE
  3. ORTHO TRI-CYCLEN [Concomitant]

REACTIONS (6)
  - Dysmenorrhoea [Not Recovered/Not Resolved]
  - Road traffic accident [Unknown]
  - Inappropriate schedule of drug administration [Unknown]
  - Amenorrhoea [Not Recovered/Not Resolved]
  - Nausea [Not Recovered/Not Resolved]
  - Vomiting [Not Recovered/Not Resolved]
